FAERS Safety Report 4627791-9 (Version None)
Quarter: 2005Q2

REPORT INFORMATION
  Report Type: 
  Country: None (occurrence: None)
  Receive Date: 20050406
  Receipt Date: 20010206
  Transmission Date: 20051028
  Serious: Yes (Hospitalization)
  Sender: FDA-Public Use
  Company Number: 10707610

PATIENT
  Age: 41 Year
  Sex: Female

DRUGS (3)
  1. SERZONE [Suspect]
     Indication: ANXIETY
     Dosage: DOSE TITRATED TO 500MG PER DAY.
     Route: 048
     Dates: start: 20000401, end: 20001221
  2. BUSPAR [Suspect]
     Indication: ANXIETY
     Dosage: DAILY DOSAGE:  2/3 TABLET.
     Route: 048
     Dates: end: 20001221
  3. XANAX [Concomitant]

REACTIONS (7)
  - GALLBLADDER DISORDER [None]
  - HAIR TEXTURE ABNORMAL [None]
  - HEPATIC FAILURE [None]
  - HEPATITIS [None]
  - HEPATOTOXICITY [None]
  - ORAL INTAKE REDUCED [None]
  - SKIN EXFOLIATION [None]
